FAERS Safety Report 22158441 (Version 2)
Quarter: 2023Q2

REPORT INFORMATION
  Report Type: Spontaneous
  Country: ES (occurrence: None)
  Receive Date: 20230331
  Receipt Date: 20230406
  Transmission Date: 20230722
  Serious: Yes (Other)
  Sender: FDA-Public Use
  Company Number: ES-Noden Pharma DAC-NOD202303-000004

PATIENT
  Age: 62 Year
  Sex: Male
  Weight: 83 kg

DRUGS (2)
  1. RASILEZ [Suspect]
     Active Substance: ALISKIREN
     Indication: Product used for unknown indication
     Dosage: WITHDRAWN AND START FOLLOWED BY LOSARTAN 100 MG, 28 TABLETS
     Route: 048
     Dates: start: 19980118, end: 20230117
  2. LOSARTAN POTASSIUM [Suspect]
     Active Substance: LOSARTAN POTASSIUM
     Indication: Hypertension
     Dosage: 100 MG STARTING DOSE AFTER WITHDRAWAL OF RASILEZ 150 MG, 28 TABLETS
     Route: 048
     Dates: start: 20230118

REACTIONS (1)
  - Extrasystoles [Not Recovered/Not Resolved]

NARRATIVE: CASE EVENT DATE: 20230120
